FAERS Safety Report 10955396 (Version 1)
Quarter: 2015Q1

REPORT INFORMATION
  Report Type: Report from Study
  Country: US (occurrence: None)
  Receive Date: 20150320
  Receipt Date: 20150320
  Transmission Date: 20150721
  Serious: No
  Sender: FDA-Public Use
  Company Number: US-145612

PATIENT
  Age: 92 Year
  Sex: Male
  Weight: 56 kg

DRUGS (6)
  1. BOTULISM ANTITOXIN [Suspect]
     Active Substance: BOTULISM ANTITOXIN
     Indication: BOTULISM
     Dosage: (NOT OTHERWISE SPECIFIED)
     Route: 042
     Dates: start: 20150206, end: 20150207
  2. ECOTRIN [Concomitant]
     Active Substance: ASPIRIN
  3. CLONAZEPAM. [Concomitant]
     Active Substance: CLONAZEPAM
  4. APRESOLINE HYDROCHLORIDE [Concomitant]
     Active Substance: HYDRALAZINE HYDROCHLORIDE
  5. LOPRESSOR [Concomitant]
     Active Substance: METOPROLOL TARTRATE
  6. PROTONIX [Concomitant]
     Active Substance: PANTOPRAZOLE SODIUM

REACTIONS (3)
  - Neurological symptom [None]
  - Pneumonia aspiration [None]
  - Botulism [None]

NARRATIVE: CASE EVENT DATE: 20150206
